FAERS Safety Report 21559564 (Version 2)
Quarter: 2022Q4

REPORT INFORMATION
  Report Type: Report from Study
  Country: SA (occurrence: SA)
  Receive Date: 20221107
  Receipt Date: 20221215
  Transmission Date: 20230113
  Serious: Yes (Hospitalization)
  Sender: FDA-Public Use
  Company Number: SA-GLAXOSMITHKLINE-SA2022EME139738

PATIENT

DRUGS (1)
  1. MEPOLIZUMAB [Suspect]
     Active Substance: MEPOLIZUMAB
     Indication: Asthma
     Dosage: 100 MG, Z, MONTHLY
     Route: 058
     Dates: start: 20220918

REACTIONS (9)
  - Dyspnoea [Not Recovered/Not Resolved]
  - Pyrexia [Unknown]
  - Movement disorder [Unknown]
  - Productive cough [Not Recovered/Not Resolved]
  - Snoring [Not Recovered/Not Resolved]
  - Wheezing [Not Recovered/Not Resolved]
  - Malaise [Not Recovered/Not Resolved]
  - Joint swelling [Unknown]
  - Sinus operation [Unknown]

NARRATIVE: CASE EVENT DATE: 20220918
